FAERS Safety Report 25513157 (Version 1)
Quarter: 2025Q3

REPORT INFORMATION
  Report Type: Spontaneous
  Country: US (occurrence: US)
  Receive Date: 20250703
  Receipt Date: 20250703
  Transmission Date: 20251021
  Serious: No
  Sender: RADIUS PHARM
  Company Number: US-RADIUS HEALTH INC.-2024US003323

PATIENT
  Age: 64 Year
  Sex: Female
  Weight: 58.957 kg

DRUGS (11)
  1. TYMLOS [Suspect]
     Active Substance: ABALOPARATIDE
     Indication: Product used for unknown indication
     Route: 058
     Dates: start: 202402
  2. TYMLOS [Suspect]
     Active Substance: ABALOPARATIDE
     Route: 058
     Dates: start: 202311, end: 202311
  3. FAMOTIDINE [Concomitant]
     Active Substance: FAMOTIDINE
     Indication: Product used for unknown indication
  4. CALCIUM CITRATE;COLECALCIFEROL;MAGNESIUM [Concomitant]
     Indication: Product used for unknown indication
  5. D 400 [Concomitant]
     Indication: Product used for unknown indication
  6. LUTEIN ZEAXANTHIN [Concomitant]
     Indication: Product used for unknown indication
  7. CLARITIN [Concomitant]
     Active Substance: LORATADINE
     Indication: Product used for unknown indication
  8. FLONASE ALLERGY RELIEF [Concomitant]
     Active Substance: FLUTICASONE PROPIONATE
     Indication: Product used for unknown indication
  9. AZELASTINE HYDROCHLORIDE [Concomitant]
     Active Substance: AZELASTINE HYDROCHLORIDE
     Indication: Product used for unknown indication
  10. ESTRADIOL / NORETHINDRONE ACETATE [Concomitant]
     Active Substance: ESTRADIOL\NORETHINDRONE ACETATE
     Indication: Product used for unknown indication
  11. AVEPRO [Concomitant]
     Indication: Product used for unknown indication

REACTIONS (4)
  - Injection site bruising [Not Recovered/Not Resolved]
  - Therapy interrupted [Recovered/Resolved]
  - Heart rate increased [Not Recovered/Not Resolved]
  - Feeling cold [Not Recovered/Not Resolved]

NARRATIVE: CASE EVENT DATE: 20231101
